FAERS Safety Report 11043998 (Version 3)
Quarter: 2015Q2

REPORT INFORMATION
  Report Type: Spontaneous
  Country: None (occurrence: None)
  Receive Date: 20150415
  Receipt Date: 20150529
  Transmission Date: 20150821
  Serious: Yes (Hospitalization, Other)
  Sender: FDA-Public Use
  Company Number: JP2015JPN046214

PATIENT

DRUGS (11)
  1. CELSENTRI (MARAVIROC) [Concomitant]
  2. ISENTRESS [Concomitant]
     Active Substance: RALTEGRAVIR POTASSIUM
  3. BROTIZOLAM OD (BROTIZOLAM) [Concomitant]
  4. REBAMIPIDE [Concomitant]
     Active Substance: REBAMIPIDE
  5. EDURANT [Concomitant]
     Active Substance: RILPIVIRINE HYDROCHLORIDE
  6. NORVIR [Concomitant]
     Active Substance: RITONAVIR
  7. CLARITH (CLARITHROMYCIN) [Concomitant]
  8. LOXOPROFEN [Concomitant]
     Active Substance: LOXOPROFEN
  9. EPIVIR [Suspect]
     Active Substance: LAMIVUDINE
     Route: 048
  10. PREZISTANAIVE (DARUNAVIR ETHANOLATE) TABLET [Concomitant]
     Active Substance: DARUNAVIR
  11. LEXIVA (FOSAMPRENAVIR) [Concomitant]

REACTIONS (5)
  - Decreased appetite [None]
  - Stem cell transplant [None]
  - Pancytopenia [None]
  - Acute myeloid leukaemia [None]
  - Oropharyngeal pain [None]
